FAERS Safety Report 14314402 (Version 1)
Quarter: 2017Q4

REPORT INFORMATION
  Report Type: Spontaneous
  Country: NL (occurrence: NL)
  Receive Date: 20171221
  Receipt Date: 20171221
  Transmission Date: 20180321
  Serious: Yes (Other)
  Sender: FDA-Public Use
  Company Number: NL-FERRINGPH-2017FE06268

PATIENT

DRUGS (4)
  1. HYDROCHLOORTHIAZIDE [Concomitant]
     Active Substance: HYDROCHLOROTHIAZIDE
     Dosage: ()
  2. BISACODYL. [Concomitant]
     Active Substance: BISACODYL
     Dosage: ()
  3. CHOLECALCIFEROL [Concomitant]
     Active Substance: CHOLECALCIFEROL
     Dosage: ()
  4. PICOPREP [Suspect]
     Active Substance: ANHYDROUS CITRIC ACID\MAGNESIUM OXIDE\SODIUM PICOSULFATE
     Indication: COLONOSCOPY
     Dosage: IN THE MORNING 1 SACHET, 8 HOURS LATER THE OTHER SACHET
     Dates: start: 20171103, end: 20171103

REACTIONS (2)
  - Loss of consciousness [Recovered/Resolved]
  - Hyperventilation [Recovered/Resolved]

NARRATIVE: CASE EVENT DATE: 20171103
